FAERS Safety Report 8935587 (Version 2)
Quarter: 2013Q2

REPORT INFORMATION
  Report Type: Spontaneous
  Country: US (occurrence: US)
  Receive Date: 20121130
  Receipt Date: 20130401
  Transmission Date: 20140414
  Serious: Yes (Hospitalization)
  Sender: FDA-Public Use
  Company Number: US-BAYER-2012-124730

PATIENT
  Age: 38 Year
  Sex: Female
  Weight: 62.59 kg

DRUGS (5)
  1. OCELLA [Suspect]
     Dosage: UNK
     Dates: start: 199903, end: 201202
  2. YASMIN [Suspect]
     Dosage: UNK
     Dates: start: 199903, end: 201202
  3. GABAPENTIN [Concomitant]
     Dosage: UNK
     Route: 048
     Dates: start: 2009, end: 2012
  4. BACLOFEN [Concomitant]
     Dosage: UNK
     Dates: start: 2009, end: 2012
  5. PERCOCET [Concomitant]
     Dosage: UNK
     Dates: start: 2009, end: 2012

REACTIONS (4)
  - Gallbladder disorder [None]
  - Cholecystitis acute [None]
  - Injury [None]
  - Pain [None]
